FAERS Safety Report 17666250 (Version 1)
Quarter: 2020Q2

REPORT INFORMATION
  Report Type: Spontaneous
  Country: US (occurrence: US)
  Receive Date: 20200414
  Receipt Date: 20200414
  Transmission Date: 20200713
  Serious: Yes (Other)
  Sender: FDA-Public Use
  Company Number: US-FRESENIUS KABI-FK202003696

PATIENT

DRUGS (2)
  1. BUPIVACAINE (MANUFACTURER UNKNOWN) [Suspect]
     Active Substance: BUPIVACAINE
     Indication: EPIDURAL ANALGESIA
     Dosage: BUPIVACAINE AND FENTANYL WERE MIXED IN A 50-ML BAG OF 0.9 PERCENT SODIUM CHLORIDE WITH ADDITIONAL DI
     Route: 064
  2. FENTANYL (MANUFACTURER UNKNOWN) [Suspect]
     Active Substance: FENTANYL
     Indication: EPIDURAL ANALGESIA
     Dosage: BUPIVACAINE AND FENTANYL WERE MIXED IN A 50-ML BAG OF 0.9 PERCENT SODIUM CHLORIDE WITH ADDITIONAL DI
     Route: 064

REACTIONS (3)
  - Foetal exposure during pregnancy [Recovered/Resolved]
  - Apgar score low [Recovered/Resolved]
  - Wrong product administered [Recovered/Resolved]
